FAERS Safety Report 9701693 (Version 2)
Quarter: 2013Q4

REPORT INFORMATION
  Report Type: Spontaneous
  Country: US (occurrence: US)
  Receive Date: 20131119
  Receipt Date: 20131119
  Transmission Date: 20140711
  Serious: Yes (Other)
  Sender: FDA-Public Use
  Company Number: US-SAVIENT-2013S1000047

PATIENT
  Age: 89 Year
  Sex: Female
  Weight: 73 kg

DRUGS (10)
  1. KRYSTEXXA [Suspect]
     Indication: GOUT
     Route: 042
     Dates: start: 20130403, end: 20130403
  2. KRYSTEXXA [Suspect]
     Route: 042
     Dates: start: 20130417, end: 20130417
  3. KRYSTEXXA [Suspect]
     Route: 042
     Dates: start: 20130501, end: 20130501
  4. AMIODARONE [Concomitant]
     Indication: PRODUCT USED FOR UNKNOWN INDICATION
  5. LISINOPRIL [Concomitant]
     Indication: PRODUCT USED FOR UNKNOWN INDICATION
  6. LASIX [Concomitant]
     Indication: PRODUCT USED FOR UNKNOWN INDICATION
  7. RECLAST [Concomitant]
     Indication: PRODUCT USED FOR UNKNOWN INDICATION
  8. ULORIC [Concomitant]
     Indication: PRODUCT USED FOR UNKNOWN INDICATION
  9. TYLENOL [Concomitant]
     Indication: ALLERGY PROPHYLAXIS
     Route: 048
  10. SOLU-MEDROL [Concomitant]
     Indication: ALLERGY PROPHYLAXIS
     Route: 042

REACTIONS (2)
  - Infusion related reaction [Recovered/Resolved]
  - Therapeutic response decreased [Unknown]
